FAERS Safety Report 24335722 (Version 3)
Quarter: 2024Q4

REPORT INFORMATION
  Report Type: Spontaneous
  Country: AU (occurrence: AU)
  Receive Date: 20240919
  Receipt Date: 20241212
  Transmission Date: 20250115
  Serious: Yes (Hospitalization, Disabling)
  Sender: NOVO NORDISK
  Company Number: AU-NOVOPROD-1281480

PATIENT
  Sex: Male

DRUGS (3)
  1. OZEMPIC [Suspect]
     Active Substance: SEMAGLUTIDE
     Dosage: 37 CLICKS FOR A 0.5MG
  2. OZEMPIC [Suspect]
     Active Substance: SEMAGLUTIDE
     Indication: Weight control
     Dosage: 16 CLICKS FOR 0.25MG DOSE
     Dates: start: 2024
  3. WARFARIN [Concomitant]
     Active Substance: WARFARIN
     Indication: Product used for unknown indication
     Dosage: UNK

REACTIONS (7)
  - Oedema peripheral [Unknown]
  - Haematological infection [Unknown]
  - Lymphatic disorder [Unknown]
  - Vitamin B12 decreased [Unknown]
  - Vitamin D decreased [Unknown]
  - Wrong technique in product usage process [Unknown]
  - Product use in unapproved indication [Unknown]

NARRATIVE: CASE EVENT DATE: 20240101
